FAERS Safety Report 25634721 (Version 1)
Quarter: 2025Q3

REPORT INFORMATION
  Report Type: Spontaneous
  Country: AU (occurrence: AU)
  Receive Date: 20250801
  Receipt Date: 20250801
  Transmission Date: 20251020
  Serious: Yes (Other)
  Sender: MYLAN
  Company Number: AU-MYLANLABS-2025M1064639

PATIENT
  Age: 70 Year
  Sex: Female

DRUGS (8)
  1. DILANTIN [Suspect]
     Active Substance: PHENYTOIN
     Indication: Product used for unknown indication
  2. DILANTIN [Suspect]
     Active Substance: PHENYTOIN
     Route: 065
  3. DILANTIN [Suspect]
     Active Substance: PHENYTOIN
     Route: 065
  4. DILANTIN [Suspect]
     Active Substance: PHENYTOIN
  5. XARELTO [Suspect]
     Active Substance: RIVAROXABAN
     Indication: Product used for unknown indication
  6. XARELTO [Suspect]
     Active Substance: RIVAROXABAN
     Route: 065
  7. XARELTO [Suspect]
     Active Substance: RIVAROXABAN
     Route: 065
  8. XARELTO [Suspect]
     Active Substance: RIVAROXABAN

REACTIONS (3)
  - Pulmonary embolism [Unknown]
  - Dyspnoea [Unknown]
  - Tachycardia [Unknown]

NARRATIVE: CASE EVENT DATE: 20210407
